FAERS Safety Report 5624013-7 (Version None)
Quarter: 2008Q1

REPORT INFORMATION
  Report Type: 
  Country: None (occurrence: None)
  Receive Date: 20080213
  Receipt Date: 20080208
  Transmission Date: 20080703
  Serious: Yes (Other)
  Sender: FDA-Public Use
  Company Number: DE-JNJFOC-20070900155

PATIENT
  Sex: Female

DRUGS (5)
  1. RISPERDAL [Suspect]
     Indication: DEMENTIA ALZHEIMER'S TYPE
  2. RISPERDAL [Suspect]
     Indication: DEMENTIA
  3. ARICEPT [Suspect]
     Indication: DEMENTIA ALZHEIMER'S TYPE
  4. ARICEPT [Suspect]
     Indication: DEMENTIA
  5. IMODIUM [Concomitant]
     Indication: DIARRHOEA

REACTIONS (1)
  - PARKINSONISM [None]
